FAERS Safety Report 5478640-0 (Version None)
Quarter: 2007Q4

REPORT INFORMATION
  Report Type: 
  Country: None (occurrence: None)
  Receive Date: 20071005
  Receipt Date: 20070906
  Transmission Date: 20080405
  Serious: Yes (Hospitalization)
  Sender: FDA-Public Use
  Company Number: DE-AMGEN-UK184235

PATIENT
  Sex: Male
  Weight: 96 kg

DRUGS (9)
  1. KEPIVANCE [Suspect]
     Indication: MUCOSAL INFLAMMATION
     Route: 040
     Dates: start: 20060613
  2. VINCRISTINE [Suspect]
     Route: 065
     Dates: start: 20060614
  3. UNSPECIFIED BETA BLOCKER [Suspect]
     Route: 065
     Dates: start: 20060801
  4. IFOSFAMIDE [Concomitant]
     Route: 042
     Dates: start: 20060614, end: 20060618
  5. ETOPOSIDE [Concomitant]
     Route: 042
     Dates: start: 20060617, end: 20060618
  6. CYTARABINE [Concomitant]
     Route: 065
     Dates: start: 20060614, end: 20060618
  7. CORTISONE ACETATE TAB [Concomitant]
     Route: 065
  8. RITUXIMAB [Concomitant]
     Route: 042
     Dates: start: 20060616
  9. METHOTREXATE [Concomitant]
     Dates: start: 20060614, end: 20060615

REACTIONS (12)
  - BLISTER [None]
  - DRUG INTERACTION [None]
  - DYSAESTHESIA [None]
  - DYSGEUSIA [None]
  - ERECTILE DYSFUNCTION [None]
  - ERYTHEMA [None]
  - FATIGUE [None]
  - HYPERTENSION [None]
  - OEDEMA PERIPHERAL [None]
  - PAIN [None]
  - PERIPHERAL VASCULAR DISORDER [None]
  - TONGUE DISORDER [None]
